FAERS Safety Report 5745656-6 (Version None)
Quarter: 2008Q2

REPORT INFORMATION
  Report Type: 
  Country: None (occurrence: None)
  Receive Date: 20080521
  Receipt Date: 20080516
  Transmission Date: 20081010
  Serious: Yes (Hospitalization, Other)
  Sender: FDA-Public Use
  Company Number: PHHO2004US18072

PATIENT
  Age: 62 Year
  Sex: Female

DRUGS (10)
  1. ZOLEDRONIC ACID [Suspect]
     Indication: METASTASES TO BONE
     Dosage: 4 MG PER 6 MONTHS
     Route: 048
     Dates: start: 20030725
  2. FOLIC ACID [Concomitant]
     Dosage: 400 MG, QD
     Route: 048
  3. MAGNESIUM [Concomitant]
  4. VITAMIN CAP [Concomitant]
  5. SYNTHROID [Concomitant]
     Indication: HYPOTHYROIDISM
     Dates: start: 19910101
  6. CELEBREX [Concomitant]
     Indication: ARTHRITIS
     Dosage: 200 MG, BID
     Route: 048
  7. DARVOCET-N [Concomitant]
     Indication: PAIN
  8. ASPIRIN [Concomitant]
  9. CITRACAL [Concomitant]
  10. FEMARA [Suspect]
     Indication: BREAST CANCER
     Dosage: 2.5 MG, QD
     Route: 048
     Dates: start: 20030725

REACTIONS (6)
  - ARTHRALGIA [None]
  - ARTHRITIS [None]
  - DISEASE PROGRESSION [None]
  - HIP ARTHROPLASTY [None]
  - OSTEOARTHRITIS [None]
  - OSTEONECROSIS [None]
